FAERS Safety Report 10211206 (Version 1)
Quarter: 2014Q2

REPORT INFORMATION
  Report Type: Spontaneous
  Country: US (occurrence: None)
  Receive Date: 20140530
  Receipt Date: 20140530
  Transmission Date: 20141212
  Serious: Yes (Other)
  Sender: FDA-Public Use
  Company Number: None

PATIENT
  Age: 79 Year
  Sex: Female
  Weight: 68.2 kg

DRUGS (5)
  1. SUNITINIB [Suspect]
     Indication: METASTATIC RENAL CELL CARCINOMA
     Dosage: 3 TABS QD ORAL
     Route: 048
     Dates: start: 20140515
  2. OMEPRAZOLE [Concomitant]
  3. WARFARIN [Concomitant]
  4. DIPHENHYDRAMINE [Concomitant]
  5. ZOLPIDEM [Concomitant]

REACTIONS (4)
  - Confusional state [None]
  - Slow speech [None]
  - International normalised ratio increased [None]
  - Drug interaction [None]
